FAERS Safety Report 17067339 (Version 1)
Quarter: 2019Q4

REPORT INFORMATION
  Report Type: Report from Study
  Country: US (occurrence: US)
  Receive Date: 20191122
  Receipt Date: 20191122
  Transmission Date: 20200122
  Serious: Yes (Other)
  Sender: FDA-Public Use
  Company Number: US-ACTELION-A-NJ2019-198072

PATIENT
  Sex: Female
  Weight: 81.63 kg

DRUGS (2)
  1. VELETRI [Suspect]
     Active Substance: EPOPROSTENOL
     Indication: PULMONARY ARTERIAL HYPERTENSION
     Dosage: 5 NG/KG, PER MIN
     Route: 042
  2. OXYGEN. [Concomitant]
     Active Substance: OXYGEN
     Dosage: 2 L, PER MIN

REACTIONS (6)
  - Asthenia [Unknown]
  - Fatigue [Unknown]
  - Vomiting [Recovering/Resolving]
  - Pain [Recovering/Resolving]
  - Dialysis [Unknown]
  - Nausea [Unknown]
